FAERS Safety Report 23753488 (Version 1)
Quarter: 2024Q2

REPORT INFORMATION
  Report Type: Spontaneous
  Country: CA (occurrence: CA)
  Receive Date: 20240417
  Receipt Date: 20240417
  Transmission Date: 20240715
  Serious: Yes (Hospitalization)
  Sender: FDA-Public Use
  Company Number: CA-TEVA-VS-3181928

PATIENT
  Sex: Female

DRUGS (2)
  1. MESALAMINE [Suspect]
     Active Substance: MESALAMINE
     Indication: Crohn^s disease
     Dosage: DOSE FORM: NOT SPECIFIED
     Route: 065
  2. PREDNISONE [Concomitant]
     Active Substance: PREDNISONE
     Indication: Crohn^s disease
     Dosage: DOSE FORM: NOT SPECIFIED
     Route: 048

REACTIONS (2)
  - Abdominal abscess [Recovered/Resolved]
  - Drug ineffective [Recovered/Resolved]
